FAERS Safety Report 24657409 (Version 4)
Quarter: 2025Q3

REPORT INFORMATION
  Report Type: Report from Study
  Country: US (occurrence: US)
  Receive Date: 20241125
  Receipt Date: 20250709
  Transmission Date: 20251021
  Serious: Yes (Other)
  Sender: TAKEDA
  Company Number: US-TAKEDA-2024TUS117570

PATIENT
  Age: 58 Year
  Sex: Female

DRUGS (4)
  1. VONICOG ALFA [Suspect]
     Active Substance: VONICOG ALFA
     Indication: Haemorrhage
  2. VONICOG ALFA [Suspect]
     Active Substance: VONICOG ALFA
     Dosage: 2600 INTERNATIONAL UNIT, 3/WEEK
  3. VONICOG ALFA [Suspect]
     Active Substance: VONICOG ALFA
  4. VONICOG ALFA [Suspect]
     Active Substance: VONICOG ALFA

REACTIONS (5)
  - Gastrointestinal haemorrhage [Not Recovered/Not Resolved]
  - Internal haemorrhage [Unknown]
  - Asthenia [Unknown]
  - Product distribution issue [Unknown]
  - Product dose omission issue [Unknown]

NARRATIVE: CASE EVENT DATE: 20241031
